FAERS Safety Report 14035658 (Version 1)
Quarter: 2017Q4

REPORT INFORMATION
  Report Type: Spontaneous
  Country: US (occurrence: US)
  Receive Date: 20171003
  Receipt Date: 20171003
  Transmission Date: 20180321
  Serious: Yes (Other)
  Sender: FDA-Public Use
  Company Number: US-BAUSCH-BL-2017-028316

PATIENT
  Age: 38 Year
  Sex: Female

DRUGS (4)
  1. PICATO [Concomitant]
     Active Substance: INGENOL MEBUTATE
     Indication: EPIDERMODYSPLASIA VERRUCIFORMIS
     Dosage: QAM
  2. ALDARA [Suspect]
     Active Substance: IMIQUIMOD
     Indication: EPIDERMODYSPLASIA VERRUCIFORMIS
     Route: 065
  3. TRETINOIN. [Concomitant]
     Active Substance: TRETINOIN
     Indication: EPIDERMODYSPLASIA VERRUCIFORMIS
     Dosage: 0.05 PERCENT CREAM Q DAILY
  4. SORIATANE [Concomitant]
     Active Substance: ACITRETIN
     Indication: EPIDERMODYSPLASIA VERRUCIFORMIS
     Dosage: 25 MG Q AM

REACTIONS (1)
  - Drug resistance [Unknown]
